FAERS Safety Report 17149484 (Version 1)
Quarter: 2019Q4

REPORT INFORMATION
  Report Type: Other
  Country: DE (occurrence: DE)
  Receive Date: 20191213
  Receipt Date: 20191213
  Transmission Date: 20200122
  Serious: Yes (Life-Threatening, Hospitalization, Other)
  Sender: FDA-Public Use
  Company Number: DE-EMCURE PHARMACEUTICALS LTD-2019-EPL-1188

PATIENT
  Age: 60 Year
  Sex: Male
  Weight: 83 kg

DRUGS (4)
  1. 5-FLUOROURACIL                     /00098801/ [Concomitant]
     Active Substance: FLUOROURACIL
     Dosage: 600 MILLIGRAM
     Route: 040
  2. 5-FLUOROURACIL                     /00098801/ [Concomitant]
     Active Substance: FLUOROURACIL
     Dosage: 3800 MILLIGRAM
     Route: 042
  3. IRINOTECAN HYDROCHLORIDE. [Suspect]
     Active Substance: IRINOTECAN HYDROCHLORIDE
     Indication: RECTAL CANCER
     Dosage: 263 MILLIGRAM
     Dates: start: 20190828
  4. FOLIC ACID. [Concomitant]
     Active Substance: FOLIC ACID
     Dosage: 600 MILLIGRAM

REACTIONS (2)
  - Necrotising colitis [Unknown]
  - Ileus [Unknown]

NARRATIVE: CASE EVENT DATE: 20190909
